FAERS Safety Report 9396128 (Version 3)
Quarter: 2013Q3

REPORT INFORMATION
  Report Type: Report from Study
  Country: US (occurrence: US)
  Receive Date: 20130711
  Receipt Date: 20130725
  Transmission Date: 20140515
  Serious: Yes (Death, Life-Threatening)
  Sender: FDA-Public Use
  Company Number: US-FRI-1000046561

PATIENT
  Age: 87 Year
  Sex: Female
  Weight: 51.8 kg

DRUGS (19)
  1. CEFTAROLINE FOSAMIL (OPEN-LABEL) [Suspect]
     Indication: STAPHYLOCOCCAL BACTERAEMIA
     Dosage: 900 MG FROM 26-JUN-2013 TO 28-JUN-2013 AND 1200 MG FROM 28-JUN-2013 TO 30-JUN-2013
     Route: 042
     Dates: start: 20130626, end: 20130630
  2. NAFCILLIN [Suspect]
     Indication: STAPHYLOCOCCAL BACTERAEMIA
     Dosage: 12 GRAM
     Route: 042
     Dates: start: 20130630, end: 20130703
  3. VANCOMYCIN [Suspect]
     Indication: STAPHYLOCOCCAL BACTERAEMIA
     Dosage: 1 GRAM
     Route: 042
     Dates: start: 20130625, end: 20130625
  4. VANCOMYCIN [Suspect]
     Indication: STAPHYLOCOCCAL BACTERAEMIA
     Route: 042
     Dates: start: 20130703, end: 20130703
  5. PREDNISONE [Suspect]
     Indication: PAIN
     Dosage: 20 MILLIGRAM
     Route: 048
     Dates: start: 20130624, end: 20130703
  6. ASPIRIN EC [Suspect]
     Indication: CARDIOVASCULAR EVENT PROPHYLAXIS
     Dosage: 81 MILLIGRAM
     Route: 048
     Dates: start: 2011, end: 20130703
  7. HEPARIN [Suspect]
     Indication: THROMBOSIS PROPHYLAXIS
     Dosage: 15000 UNITS
     Route: 058
     Dates: start: 20130623, end: 20130703
  8. CARDIZEM CD [Concomitant]
     Indication: HYPERTENSION
     Dosage: 180 MILLIGRAM
     Route: 048
     Dates: start: 2011, end: 20130703
  9. COLACE [Concomitant]
     Indication: CONSTIPATION
     Dosage: 200 MILLIGRAM
     Route: 048
     Dates: start: 20130625, end: 20130704
  10. SYNTHROID [Concomitant]
     Indication: HYPOTHYROIDISM
     Dosage: 25 MICROGRAM
     Route: 048
     Dates: start: 2011, end: 20130703
  11. LIDOCAINE [Concomitant]
     Indication: PAIN
     Route: 062
     Dates: start: 20130629, end: 20130703
  12. PRILOSEC [Concomitant]
     Indication: GASTROOESOPHAGEAL REFLUX DISEASE
     Dosage: 20 MILLIGRAM
     Route: 048
     Dates: start: 2011, end: 20130703
  13. EXELON [Concomitant]
     Indication: DEMENTIA
     Dosage: 9.5 MILLIGRAM
     Route: 062
     Dates: start: 2010, end: 20130703
  14. EXELON [Concomitant]
     Indication: DEMENTIA
     Dosage: 4.6 MILLIGRAM
     Route: 062
     Dates: start: 20130624, end: 20130630
  15. TYLENOL [Concomitant]
     Indication: PAIN
     Route: 048
     Dates: start: 20130623, end: 20130703
  16. ALBUTEROL [Concomitant]
     Indication: WHEEZING
     Dates: start: 20130628, end: 20130628
  17. ATIVAN [Concomitant]
     Indication: AGITATION
     Dosage: 2 MG
     Route: 042
     Dates: start: 20130629, end: 20130629
  18. XANAX [Concomitant]
     Indication: AGITATION
     Dosage: 0.25 MG
     Route: 048
     Dates: start: 20130628, end: 20130628
  19. LASIX [Concomitant]
     Dosage: 20 MG
     Route: 042
     Dates: start: 20130629, end: 20130629

REACTIONS (1)
  - Lower gastrointestinal haemorrhage [Fatal]
